FAERS Safety Report 11452527 (Version 3)
Quarter: 2016Q1

REPORT INFORMATION
  Report Type: Spontaneous
  Country: JP (occurrence: JP)
  Receive Date: 20150903
  Receipt Date: 20160219
  Transmission Date: 20160525
  Serious: Yes (Disabling, Other)
  Sender: FDA-Public Use
  Company Number: JP-PFIZER INC-2015285620

PATIENT
  Age: 50 Year
  Sex: Male
  Weight: 74 kg

DRUGS (18)
  1. ELPLAT [Suspect]
     Active Substance: OXALIPLATIN
     Dosage: 170 MG, 1X/DAY
     Route: 041
     Dates: start: 20150805, end: 20150805
  2. DECADRON [Concomitant]
     Active Substance: DEXAMETHASONE
     Dosage: UNK
     Dates: start: 20150722
  3. ELPLAT [Suspect]
     Active Substance: OXALIPLATIN
     Dosage: 170 MG, 1X/DAY
     Route: 041
     Dates: start: 20150722, end: 20150722
  4. 5-FU [Concomitant]
     Active Substance: FLUOROURACIL
     Dosage: 4800 MG, D1-2
     Route: 041
     Dates: start: 20150708, end: 20150708
  5. GABALON [Concomitant]
     Active Substance: BACLOFEN
     Dosage: UNK
     Dates: start: 20150722
  6. PREDNISOLONE. [Concomitant]
     Active Substance: PREDNISOLONE
     Dosage: UNK
     Dates: start: 20150823
  7. ELPLAT [Suspect]
     Active Substance: OXALIPLATIN
     Indication: PANCREATIC CARCINOMA
     Dosage: 170 MG, 1X/DAY
     Route: 041
     Dates: start: 20150708, end: 20150708
  8. 5-FU [Concomitant]
     Active Substance: FLUOROURACIL
     Dosage: 4720 MG, D1-2
     Route: 041
     Dates: start: 20150722, end: 20150722
  9. 5-FU [Concomitant]
     Active Substance: FLUOROURACIL
     Dosage: UNK
     Dates: start: 20150805, end: 20150805
  10. CAMPTO [Suspect]
     Active Substance: IRINOTECAN
     Indication: PANCREATIC CARCINOMA
     Dosage: 340 MG, 1X/DAY
     Route: 041
     Dates: start: 20150708, end: 20150708
  11. CAMPTO [Suspect]
     Active Substance: IRINOTECAN
     Dosage: 350 MG, 1X/DAY
     Route: 041
     Dates: start: 20150805, end: 20150805
  12. 5-FU [Concomitant]
     Active Substance: FLUOROURACIL
     Indication: PANCREATIC CARCINOMA
     Dosage: 800 MG, 1X/DAY
     Route: 040
     Dates: start: 20150708, end: 20150708
  13. 5-FU [Concomitant]
     Active Substance: FLUOROURACIL
     Dosage: 785 MG, 1X/DAY
     Route: 040
     Dates: start: 20150722, end: 20150722
  14. PREDNISOLONE SODIUM SUCCINATE [Concomitant]
     Active Substance: PREDNISOLONE SODIUM SUCCINATE
     Dosage: UNK
     Dates: start: 20150820, end: 20150822
  15. LEVOLEUCOVORIN CALCIUM [Concomitant]
     Active Substance: LEVOLEUCOVORIN CALCIUM
     Indication: PANCREATIC CARCINOMA
     Dosage: 400 MG, 1X/DAY
     Route: 041
     Dates: start: 20150708, end: 20150805
  16. CAMPTO [Suspect]
     Active Substance: IRINOTECAN
     Dosage: 350 MG, 1X/DAY
     Route: 041
     Dates: start: 20150722, end: 20150722
  17. CRAVIT [Concomitant]
     Active Substance: LEVOFLOXACIN
     Dosage: UNK
     Dates: start: 20150630
  18. EMEND [Concomitant]
     Active Substance: APREPITANT
     Dosage: UNK
     Dates: start: 20150708, end: 20150807

REACTIONS (3)
  - Diarrhoea [Recovered/Resolved]
  - Hiccups [Recovered/Resolved]
  - Haemolytic uraemic syndrome [Recovered/Resolved]

NARRATIVE: CASE EVENT DATE: 20150722
